FAERS Safety Report 24605700 (Version 1)
Quarter: 2024Q4

REPORT INFORMATION
  Report Type: Spontaneous
  Country: CN (occurrence: CN)
  Receive Date: 20241111
  Receipt Date: 20241111
  Transmission Date: 20250115
  Serious: Yes (Life-Threatening, Hospitalization, Other)
  Sender: MERCK
  Company Number: CN-009507513-2411CHN001357

PATIENT
  Age: 51 Year
  Sex: Male

DRUGS (2)
  1. CILASTATIN SODIUM\IMIPENEM [Suspect]
     Active Substance: CILASTATIN SODIUM\IMIPENEM
     Indication: Diabetic foot infection
     Dosage: 1G, TID, IV DRIP
     Route: 041
     Dates: start: 20240904, end: 20240923
  2. ATORVASTATIN CALCIUM [Suspect]
     Active Substance: ATORVASTATIN CALCIUM
     Indication: Arteriosclerosis
     Dosage: 10 MG, QD (ALSO REPORTED AS QN), ORALLY
     Route: 048
     Dates: start: 20240910, end: 20240911

REACTIONS (17)
  - Rash erythematous [Recovered/Resolved with Sequelae]
  - Acute generalised exanthematous pustulosis [Recovered/Resolved with Sequelae]
  - Rash pruritic [Recovered/Resolved with Sequelae]
  - Erythema [Recovered/Resolved with Sequelae]
  - Arteriosclerosis [Unknown]
  - Rash maculo-papular [Recovered/Resolved with Sequelae]
  - Dermatitis allergic [Recovered/Resolved with Sequelae]
  - Pustular psoriasis [Recovered/Resolved with Sequelae]
  - Genital odour [Recovered/Resolved with Sequelae]
  - Scrotal swelling [Recovered/Resolved with Sequelae]
  - Scrotal pain [Recovered/Resolved with Sequelae]
  - Scrotal erythema [Recovered/Resolved with Sequelae]
  - Pruritus genital [Recovered/Resolved with Sequelae]
  - Scrotum erosion [Recovered/Resolved with Sequelae]
  - Genital erosion [Recovered/Resolved with Sequelae]
  - Skin exfoliation [Recovered/Resolved with Sequelae]
  - Rash pustular [Recovered/Resolved with Sequelae]

NARRATIVE: CASE EVENT DATE: 20240910
